FAERS Safety Report 4652574-3 (Version None)
Quarter: 2005Q2

REPORT INFORMATION
  Report Type: 
  Country: None (occurrence: None)
  Receive Date: 20050504
  Receipt Date: 20050419
  Transmission Date: 20051028
  Serious: Yes (Disabling)
  Sender: FDA-Public Use
  Company Number: CA-JNJFOC-20050405370

PATIENT
  Sex: Female

DRUGS (20)
  1. DURAGESIC-100 [Suspect]
     Route: 062
  2. DURAGESIC-100 [Suspect]
     Dosage: 1-1/2 25 UG/HR PATCH. DOSE SUSPENDED FOR 24 HOURS ON 20-APR-2005.
     Route: 062
  3. SYNTHROID [Concomitant]
  4. ELAVIL [Concomitant]
     Dosage: AT BEDTIME
  5. SERAX [Concomitant]
  6. SENOKOT [Concomitant]
  7. PLAQUENIL [Concomitant]
  8. LASIX [Concomitant]
  9. COLACE [Concomitant]
  10. PANTOPRAZOLE SODIUM [Concomitant]
  11. ASPIRIN [Concomitant]
  12. CARDIZEM CD [Concomitant]
  13. K-DUR 10 [Concomitant]
  14. METHOTREXATE [Concomitant]
     Dosage: 2 TABS WED AM, 1 TAB WED PM, 1 TAB THURS AM
  15. STATEX [Concomitant]
  16. PROCHLORPERAZINE [Concomitant]
     Dosage: 1/2 AT BEDTIME
  17. FLOVENT [Concomitant]
     Route: 055
  18. COMBIVENT [Concomitant]
     Route: 055
  19. COMBIVENT [Concomitant]
     Route: 055
  20. ATASOL [Concomitant]
     Dosage: 325 - TWO TABS EVERY 4 TO 6 HRS AS NEEDED

REACTIONS (8)
  - DISORIENTATION [None]
  - DIZZINESS [None]
  - DRUG INEFFECTIVE [None]
  - FEELING ABNORMAL [None]
  - MALAISE [None]
  - MEDICATION ERROR [None]
  - NAUSEA [None]
  - SOMNOLENCE [None]
